FAERS Safety Report 8790514 (Version 1)
Quarter: 2012Q4

REPORT INFORMATION
  Report Type: Spontaneous
  Country: US (occurrence: None)
  Receive Date: 20120912
  Receipt Date: 20120912
  Transmission Date: 20130627
  Serious: Yes (Disabling, Other)
  Sender: FDA-Public Use
  Company Number: None

PATIENT
  Age: 54 Year
  Sex: Male
  Weight: 77.57 kg

DRUGS (9)
  1. PREZISTA [Suspect]
     Indication: HIV INFECTION
  2. INTELENCE [Suspect]
  3. ISENTRESS [Concomitant]
  4. ZIAGEN [Concomitant]
  5. NORVIR [Concomitant]
  6. VIREAD [Concomitant]
  7. VALCYCLOVIR [Concomitant]
  8. LEVOCARNITINE [Concomitant]
  9. LIPITOR [Concomitant]

REACTIONS (4)
  - Neuropathy peripheral [None]
  - Gait disturbance [None]
  - Nerve injury [None]
  - Pain in extremity [None]
